FAERS Safety Report 9369756 (Version 4)
Quarter: 2013Q3

REPORT INFORMATION
  Report Type: Spontaneous
  Country: US (occurrence: US)
  Receive Date: 20130626
  Receipt Date: 20130815
  Transmission Date: 20140515
  Serious: Yes (Death, Hospitalization, Other)
  Sender: FDA-Public Use
  Company Number: US-ASTELLAS-2013US006592

PATIENT
  Age: 85 Year
  Sex: Male
  Weight: 87 kg

DRUGS (1)
  1. TARCEVA [Suspect]
     Indication: NON-SMALL CELL LUNG CANCER
     Dosage: 100 MG, UID/QD
     Route: 048
     Dates: start: 20121201, end: 20130525

REACTIONS (15)
  - Incorrect dose administered [Unknown]
  - Death [Fatal]
  - Cervical vertebral fracture [Unknown]
  - Facial bones fracture [Unknown]
  - Head injury [Unknown]
  - Dyspnoea [Recovering/Resolving]
  - Dehydration [Unknown]
  - Dry eye [Not Recovered/Not Resolved]
  - Diarrhoea [Recovering/Resolving]
  - Local swelling [Unknown]
  - Fatigue [Unknown]
  - Fall [Unknown]
  - Spinal fracture [Recovering/Resolving]
  - Pneumonia [Recovering/Resolving]
  - Dyspnoea exertional [Not Recovered/Not Resolved]
